FAERS Safety Report 5562417-1 (Version None)
Quarter: 2007Q4

REPORT INFORMATION
  Report Type: 
  Country: None (occurrence: None)
  Receive Date: 20071215
  Receipt Date: 20070126
  Transmission Date: 20080405
  Serious: No
  Sender: FDA-Public Use
  Company Number: PR-AMGEN-KDL208803

PATIENT
  Sex: Female

DRUGS (2)
  1. ENBREL [Suspect]
     Indication: RHEUMATOID ARTHRITIS
     Route: 058
     Dates: start: 20010101
  2. HYDROXYCHLOROQUINE SULFATE [Concomitant]
     Route: 048
     Dates: start: 19980101

REACTIONS (5)
  - DRY SKIN [None]
  - RASH ERYTHEMATOUS [None]
  - SINUSITIS [None]
  - SKIN EXFOLIATION [None]
  - URINARY TRACT INFECTION [None]
